FAERS Safety Report 25586917 (Version 1)
Quarter: 2025Q3

REPORT INFORMATION
  Report Type: Spontaneous
  Country: US (occurrence: US)
  Receive Date: 20250721
  Receipt Date: 20250721
  Transmission Date: 20251021
  Serious: No
  Sender: Phathom Pharmaceuticals
  Company Number: US-PHATHOM PHARMACEUTICALS INC.-2025PHT01040

PATIENT
  Age: 72 Year
  Sex: Female

DRUGS (7)
  1. VOQUEZNA [Suspect]
     Active Substance: VONOPRAZAN FUMARATE
     Dosage: 20 MG, 1X/DAY
     Route: 048
     Dates: start: 20250422, end: 20250429
  2. TRIAMTERENE [Concomitant]
     Active Substance: TRIAMTERENE
  3. GABAPENTIN [Concomitant]
     Active Substance: GABAPENTIN
  4. FOLIC ACID [Concomitant]
     Active Substance: FOLIC ACID
  5. VITAMIN D3 [Concomitant]
     Active Substance: CHOLECALCIFEROL
  6. VITAMIN B12 [Concomitant]
     Active Substance: CYANOCOBALAMIN
  7. LOSARTAN [Concomitant]
     Active Substance: LOSARTAN

REACTIONS (5)
  - Dysphonia [Unknown]
  - Feeling abnormal [Unknown]
  - Hypertension [Unknown]
  - Headache [Unknown]
  - Flatulence [Unknown]

NARRATIVE: CASE EVENT DATE: 20250401
